FAERS Safety Report 21023611 (Version 2)
Quarter: 2022Q4

REPORT INFORMATION
  Report Type: Report from Study
  Country: CN (occurrence: CN)
  Receive Date: 20220629
  Receipt Date: 20221104
  Transmission Date: 20230113
  Serious: Yes (Hospitalization, Other)
  Sender: FDA-Public Use
  Company Number: CN-BoehringerIngelheim-2021-BI-136841

PATIENT
  Age: 64 Year
  Sex: Male
  Weight: 71 kg

DRUGS (2)
  1. ALTEPLASE [Suspect]
     Active Substance: ALTEPLASE
     Indication: Ischaemic stroke
     Route: 042
     Dates: start: 20211012, end: 20211012
  2. ALTEPLASE [Suspect]
     Active Substance: ALTEPLASE
     Indication: Cerebral infarction

REACTIONS (4)
  - Deep vein thrombosis [Unknown]
  - Haemorrhagic infarction [Unknown]
  - Brain oedema [Unknown]
  - Brachiocephalic vein thrombosis [Not Recovered/Not Resolved]

NARRATIVE: CASE EVENT DATE: 20211019
